FAERS Safety Report 6016593-7 (Version None)
Quarter: 2008Q4

REPORT INFORMATION
  Report Type: 
  Country: None (occurrence: None)
  Receive Date: 20081222
  Receipt Date: 20081212
  Transmission Date: 20090506
  Serious: Yes (Other)
  Sender: FDA-Public Use
  Company Number: PHHY2008CA31909

PATIENT
  Sex: Male

DRUGS (2)
  1. CLOZARIL [Suspect]
     Dosage: 200 MG DAILY
     Route: 048
     Dates: start: 20041008
  2. METHOTREXATE [Concomitant]

REACTIONS (3)
  - GAIT DISTURBANCE [None]
  - JOINT SWELLING [None]
  - SWELLING FACE [None]
